FAERS Safety Report 9387039 (Version 2)
Quarter: 2013Q3

REPORT INFORMATION
  Report Type: Spontaneous
  Country: GB (occurrence: None)
  Receive Date: 20130702
  Receipt Date: 20130705
  Transmission Date: 20140515
  Serious: Yes (Other)
  Sender: FDA-Public Use
  Company Number: AUR-APL-2013-05396

PATIENT
  Sex: Male
  Weight: 82 kg

DRUGS (13)
  1. METFORMIN [Suspect]
     Indication: DIABETES MELLITUS
     Dosage: 1700 MG (850 MG,2 IN 1 D),ORAL
     Route: 048
     Dates: start: 201010, end: 20130603
  2. PIOGLITAZONE [Suspect]
     Indication: PRODUCT USED FOR UNKNOWN INDICATION
     Dosage: 45 MG (15 MG,3 IN 1 D)
  3. ADCAL-DE (LEKOVIT CA) [Concomitant]
  4. ATENOLOL (ATENOLOL) [Concomitant]
  5. BUTRANS (BUPRENORPHINE) [Concomitant]
  6. CLOPIDOGREL (CLOPIDOGREL) [Concomitant]
  7. CODEINE (CODEINE) [Concomitant]
  8. DEXCEL-PHARMA OMEPRAZOLE (OMEPRAZOLE) [Concomitant]
  9. FUROSEMIDE (FUROSEMIDE) [Concomitant]
  10. PERINDOPRIL (PERINDOPRIL) [Concomitant]
  11. PREDNISOLONE (PREDNISOLONE) [Concomitant]
  12. SIMVADOR (SIMVASTATIN) [Concomitant]
  13. TAMSULOSIN (TAMSULOSIN) [Concomitant]

REACTIONS (1)
  - Cardiac failure [None]
